FAERS Safety Report 9644110 (Version 3)
Quarter: 2013Q4

REPORT INFORMATION
  Report Type: Spontaneous
  Country: RO (occurrence: RO)
  Receive Date: 20131024
  Receipt Date: 20131108
  Transmission Date: 20140711
  Serious: Yes (Death, Hospitalization)
  Sender: FDA-Public Use
  Company Number: RO-CELGENEUS-135-21880-13094193

PATIENT
  Age: 62 Year
  Sex: Male
  Weight: 95 kg

DRUGS (6)
  1. REVLIMID [Suspect]
     Indication: PLASMA CELL MYELOMA
     Route: 048
     Dates: start: 20130704
  2. REVLIMID [Suspect]
     Route: 048
     Dates: end: 20130918
  3. MLN9708\PLACEBO [Suspect]
     Indication: PLASMA CELL MYELOMA
     Route: 048
     Dates: start: 20130704
  4. MLN9708\PLACEBO [Suspect]
     Route: 048
     Dates: end: 20130912
  5. DEXAMETHASONE [Suspect]
     Indication: PLASMA CELL MYELOMA
     Route: 048
     Dates: start: 20130706
  6. DEXAMETHASONE [Suspect]
     Route: 048
     Dates: end: 20130919

REACTIONS (1)
  - Cellulitis [Fatal]
